FAERS Safety Report 17464978 (Version 6)
Quarter: 2020Q3

REPORT INFORMATION
  Report Type: Report from Study
  Country: AR (occurrence: AR)
  Receive Date: 20200226
  Receipt Date: 20200811
  Transmission Date: 20201102
  Serious: Yes (Hospitalization, Other)
  Sender: FDA-Public Use
  Company Number: AR-EXELIXIS-XL18420027782

PATIENT
  Age: 44 Year
  Sex: Female
  Weight: 69 kg

DRUGS (43)
  1. OMEPRAZOLE. [Concomitant]
     Active Substance: OMEPRAZOLE
     Indication: PRODUCT USED FOR UNKNOWN INDICATION
     Dosage: 40 MILLIGRAM
     Route: 048
     Dates: start: 20181009
  2. MEPREDNISONE [Concomitant]
     Active Substance: MEPREDNISONE
     Dosage: 60 MILLIGRAM
     Route: 048
     Dates: start: 20181229, end: 20181231
  3. MEPREDNISONE [Concomitant]
     Active Substance: MEPREDNISONE
     Dosage: 60 MILLIGRAM
     Route: 048
     Dates: start: 20200724
  4. RELIVERAN [Concomitant]
     Indication: NAUSEA
     Dosage: 1 DOSAGE FORM
     Route: 048
     Dates: start: 20180810
  5. METHYLPREDNISOLONE. [Concomitant]
     Active Substance: METHYLPREDNISOLONE
     Dosage: 4 MILLIGRAM
     Route: 048
     Dates: start: 20181109, end: 20200529
  6. PARACETAMOL [Concomitant]
     Active Substance: ACETAMINOPHEN
     Dosage: 1000 MILLIGRAM
     Route: 048
     Dates: start: 20190221
  7. DERMAGLOS [Concomitant]
     Indication: PALMAR-PLANTAR ERYTHRODYSAESTHESIA SYNDROME
     Dosage: 1 DOSAGE FORM
     Route: 061
     Dates: start: 20200204
  8. KETOROLAC [Concomitant]
     Active Substance: KETOROLAC TROMETHAMINE
     Dosage: 20 MG
     Route: 048
     Dates: start: 20200211
  9. PREGABALIN. [Concomitant]
     Active Substance: PREGABALIN
     Indication: BACK PAIN
     Dosage: 25 MILLIGRAM
     Route: 048
     Dates: start: 20200213
  10. NIVOLUMAB [Suspect]
     Active Substance: NIVOLUMAB
     Indication: RENAL CELL CARCINOMA
     Dosage: 240 MILLIGRAM
     Route: 042
     Dates: start: 20180827
  11. LIDOCAINE. [Concomitant]
     Active Substance: LIDOCAINE
     Indication: UPPER RESPIRATORY TRACT INFECTION
     Dosage: 1 DOSAGE FORM
     Route: 050
     Dates: start: 20181017, end: 20181107
  12. LEVOTHYROXINE. [Concomitant]
     Active Substance: LEVOTHYROXINE
     Indication: HYPOTHYROIDISM
     Dosage: 75 MICROGRAM
     Route: 048
     Dates: start: 20190311
  13. CABOZANTINIB [Suspect]
     Active Substance: CABOZANTINIB
     Dosage: 40 MILLIGRAM
     Route: 048
     Dates: start: 20191105, end: 20191231
  14. MINOXIDIL. [Concomitant]
     Active Substance: MINOXIDIL
     Indication: ALOPECIA
     Dosage: 1 DOSAGE FORM
     Route: 061
     Dates: start: 20191120
  15. METOCLOPRAMIDE. [Concomitant]
     Active Substance: METOCLOPRAMIDE
     Indication: HEADACHE
     Dosage: 40 MILLIGRAM
     Route: 048
     Dates: start: 20200211
  16. MEPREDNISONE [Concomitant]
     Active Substance: MEPREDNISONE
     Dosage: 8 MILLIGRAM
     Route: 048
     Dates: start: 20190107, end: 20190127
  17. CABOZANTINIB [Suspect]
     Active Substance: CABOZANTINIB
     Indication: RENAL CELL CARCINOMA
     Dosage: 40 MILLIGRAM
     Route: 048
     Dates: start: 20180827, end: 20191029
  18. PARACETAMOL [Concomitant]
     Active Substance: ACETAMINOPHEN
     Dosage: 1500 MILLIGRAM
     Route: 048
     Dates: start: 20191113
  19. LOPERAMIDE [Concomitant]
     Active Substance: LOPERAMIDE
     Dosage: 1 DOSAGE FORM
     Route: 048
     Dates: start: 20190315
  20. TRAMADOL. [Concomitant]
     Active Substance: TRAMADOL
     Dosage: 50 MILLIGRAM
     Route: 048
     Dates: start: 20200416, end: 20200417
  21. MEPREDNISONE [Concomitant]
     Active Substance: MEPREDNISONE
     Dosage: 6 MILLIGRAM
     Route: 048
     Dates: start: 20200618, end: 20200724
  22. CABOZANTINIB [Suspect]
     Active Substance: CABOZANTINIB
     Dosage: 20 MILLIGRAM
     Route: 048
     Dates: start: 20191104, end: 20191104
  23. CLOBETASOL [Concomitant]
     Active Substance: CLOBETASOL
     Indication: SKIN INDURATION
     Dosage: 1 DOSAGE FORM
     Route: 061
     Dates: start: 20190312
  24. XEROBASE [Concomitant]
     Indication: PALMAR-PLANTAR ERYTHRODYSAESTHESIA SYNDROME
     Dosage: 1 DOSAGE FORM
     Route: 061
     Dates: start: 20190312
  25. LOPERAMIDE [Concomitant]
     Active Substance: LOPERAMIDE
     Indication: DIARRHOEA
     Dosage: 1 DOSAGE FORM
     Route: 048
     Dates: start: 20190307, end: 20190310
  26. PYRIDOXINE [Concomitant]
     Active Substance: PYRIDOXINE
     Indication: PALMAR-PLANTAR ERYTHRODYSAESTHESIA SYNDROME
     Dosage: 100 MILLIGRAM
     Route: 048
     Dates: start: 20190326
  27. FEXOFENADINE [Concomitant]
     Active Substance: FEXOFENADINE HYDROCHLORIDE
     Indication: PALMAR-PLANTAR ERYTHRODYSAESTHESIA SYNDROME
     Dosage: 120 MILLIGRAM
     Route: 048
     Dates: start: 20200204
  28. TRAMADOL. [Concomitant]
     Active Substance: TRAMADOL
     Dosage: 200 MILLIGRAM
     Route: 048
     Dates: start: 20200422, end: 20200619
  29. MEPREDNISONE [Concomitant]
     Active Substance: MEPREDNISONE
     Dosage: 20 MILLIGRAM
     Route: 048
     Dates: start: 20200302
  30. HIFAMONIL [Concomitant]
     Indication: PALMAR-PLANTAR ERYTHRODYSAESTHESIA SYNDROME
     Dosage: 1 DOSAGE FORM
     Route: 061
     Dates: start: 20190326
  31. METHYLPREDNISOLONE. [Concomitant]
     Active Substance: METHYLPREDNISOLONE
     Indication: HYPOTHYROIDISM
     Dosage: 20 MILLIGRAM
     Route: 048
     Dates: start: 20181101, end: 20181108
  32. IBUPROFEN. [Concomitant]
     Active Substance: IBUPROFEN
     Indication: UPPER RESPIRATORY TRACT INFECTION
     Dosage: 600 MILLIGRAM
     Route: 048
     Dates: start: 20181125
  33. LIDOCAINE. [Concomitant]
     Active Substance: LIDOCAINE
     Dosage: 1 DF = 2 UNITS NOS
     Route: 050
     Dates: start: 20181125
  34. KETOROLAC [Concomitant]
     Active Substance: KETOROLAC TROMETHAMINE
     Indication: HEADACHE
     Dosage: 1 DOSAGE FORM
     Route: 042
     Dates: start: 20191113
  35. TOLFENAMIC ACID [Concomitant]
     Active Substance: TOLFENAMIC ACID
     Indication: HEADACHE
     Dosage: 200 MILLIGRAM
     Route: 048
     Dates: start: 20200211
  36. TRAMADOL. [Concomitant]
     Active Substance: TRAMADOL
     Indication: BACK PAIN
     Dosage: 150 MILLIGRAM
     Route: 048
     Dates: start: 20200213, end: 20200415
  37. IBUPROFEN. [Concomitant]
     Active Substance: IBUPROFEN
     Dosage: 1200 MILLIGRAM
     Route: 048
     Dates: start: 20190221, end: 20190727
  38. PARACETAMOL [Concomitant]
     Active Substance: ACETAMINOPHEN
     Indication: UPPER RESPIRATORY TRACT INFECTION
     Dosage: 1000 MILLIGRAM
     Route: 048
     Dates: start: 20181125
  39. CLOBETASOL [Concomitant]
     Active Substance: CLOBETASOL
     Indication: PALMAR-PLANTAR ERYTHRODYSAESTHESIA SYNDROME
  40. CLOTRIMAZOLE. [Concomitant]
     Active Substance: CLOTRIMAZOLE
     Indication: SKIN INDURATION
     Dosage: 1 DOSAGE FORM
     Route: 061
     Dates: start: 20190619
  41. MEPREDNISONE [Concomitant]
     Active Substance: MEPREDNISONE
     Indication: ADRENAL INSUFFICIENCY
     Dosage: 1 ABSENT
     Route: 048
     Dates: start: 20181023
  42. MEPREDNISONE [Concomitant]
     Active Substance: MEPREDNISONE
     Dosage: 20 MILLIGRAM
     Route: 048
     Dates: start: 20190101, end: 20190106
  43. MEPREDNISONE [Concomitant]
     Active Substance: MEPREDNISONE
     Dosage: 4 MILLIGRAM
     Route: 048
     Dates: start: 20190128, end: 20190211

REACTIONS (1)
  - Adrenal insufficiency [Recovered/Resolved]

NARRATIVE: CASE EVENT DATE: 20200214
